FAERS Safety Report 8862451 (Version 3)
Quarter: 2013Q1

REPORT INFORMATION
  Report Type: Spontaneous
  Country: US (occurrence: US)
  Receive Date: 20121026
  Receipt Date: 20130123
  Transmission Date: 20140127
  Serious: Yes (Hospitalization)
  Sender: FDA-Public Use
  Company Number: US-MERCK-1210USA007796

PATIENT
  Age: 54 Year
  Sex: Female

DRUGS (13)
  1. PEGINTRON [Suspect]
     Indication: HEPATITIS C
     Dosage: 30 MICROGRAM, QW
     Route: 058
     Dates: start: 201109
  2. RIBAVIRIN [Suspect]
     Indication: HEPATITIS C
     Dosage: 200 MG, BID
     Dates: start: 201109
  3. OPANA [Concomitant]
  4. NEULASTA [Concomitant]
  5. AMLODIPINE [Concomitant]
  6. CELLCEPT [Concomitant]
  7. PROGRAF [Concomitant]
  8. BACTRIM [Concomitant]
  9. DILAUDID [Concomitant]
     Dosage: UNK, PRN
  10. VITAMIN D (UNSPECIFIED) [Concomitant]
  11. IMITREX (SUMATRIPTAN SUCCINATE) [Concomitant]
  12. ZOFRAN [Concomitant]
  13. ZANTAC [Concomitant]

REACTIONS (5)
  - Abdominal pain [Recovering/Resolving]
  - Dehydration [Recovering/Resolving]
  - Nausea [Recovering/Resolving]
  - Vomiting [Recovering/Resolving]
  - Urinary tract infection [Unknown]
